FAERS Safety Report 18456601 (Version 1)
Quarter: 2020Q4

REPORT INFORMATION
  Report Type: Spontaneous
  Country: GB (occurrence: GB)
  Receive Date: 20201103
  Receipt Date: 20201103
  Transmission Date: 20210114
  Serious: Yes (Hospitalization)
  Sender: FDA-Public Use
  Company Number: GB-DEXPHARM-20200975

PATIENT
  Age: 60 Year
  Sex: Male

DRUGS (8)
  1. OMEPRAZOLE. [Suspect]
     Active Substance: OMEPRAZOLE
     Route: 048
     Dates: end: 20200918
  2. AMLODIPINE [Interacting]
     Active Substance: AMLODIPINE BESYLATE
     Route: 048
     Dates: end: 20200918
  3. RAMIPRIL. [Interacting]
     Active Substance: RAMIPRIL
     Dosage: AT NIGHT
     Route: 048
     Dates: end: 20200918
  4. METFORMIN [Concomitant]
     Active Substance: METFORMIN HYDROCHLORIDE
     Route: 048
  5. INDAPAMIDE. [Interacting]
     Active Substance: INDAPAMIDE
     Route: 048
     Dates: end: 20200918
  6. SIMVASTATIN. [Concomitant]
     Active Substance: SIMVASTATIN
     Route: 048
  7. FERROUS SULFATE. [Concomitant]
     Active Substance: FERROUS SULFATE
     Route: 048
  8. LEVOTHYROXINE. [Concomitant]
     Active Substance: LEVOTHYROXINE
     Route: 048

REACTIONS (2)
  - Drug interaction [Recovered/Resolved]
  - Hypokalaemia [Recovered/Resolved]

NARRATIVE: CASE EVENT DATE: 20200917
